FAERS Safety Report 23221028 (Version 2)
Quarter: 2023Q4

REPORT INFORMATION
  Report Type: Spontaneous
  Country: US (occurrence: US)
  Receive Date: 20231123
  Receipt Date: 20231210
  Transmission Date: 20240110
  Serious: No
  Sender: FDA-Public Use
  Company Number: US-LUPIN PHARMACEUTICALS INC.-2023-10322

PATIENT

DRUGS (1)
  1. ALBUTEROL SULFATE [Suspect]
     Active Substance: ALBUTEROL SULFATE
     Indication: Respiratory disorder
     Dosage: UNK, PRN, 1 PUFF AS NEEDED
     Dates: start: 20231031

REACTIONS (4)
  - Cough [Unknown]
  - Drug dose omission by device [Unknown]
  - Device delivery system issue [Unknown]
  - Product use in unapproved indication [Unknown]

NARRATIVE: CASE EVENT DATE: 20231031
